FAERS Safety Report 8616191-2 (Version None)
Quarter: 2012Q3

REPORT INFORMATION
  Report Type: 
  Country: None (occurrence: None)
  Receive Date: 20120809
  Receipt Date: 20120724
  Transmission Date: 20120928
  Serious: Yes (Life-Threatening, Hospitalization)
  Sender: FDA-Public Use
  Company Number: AMIT20120014

PATIENT
  Age: 6 Year
  Sex: Female
  Weight: 19 kg

DRUGS (2)
  1. AMITRIPTYLINE HCL [Suspect]
     Indication: INSOMNIA
     Dosage: 300 MG, ORAL
     Route: 048
  2. GUANFACINE (GUANFACINE) (GUANFACINE) [Concomitant]

REACTIONS (24)
  - POSTICTAL STATE [None]
  - SINUS TACHYCARDIA [None]
  - BUNDLE BRANCH BLOCK RIGHT [None]
  - GRAND MAL CONVULSION [None]
  - ENURESIS [None]
  - ELECTROCARDIOGRAM QRS COMPLEX PROLONGED [None]
  - BLOOD LACTIC ACID INCREASED [None]
  - MASS [None]
  - DRUG DISPENSING ERROR [None]
  - ACCIDENTAL OVERDOSE [None]
  - MYDRIASIS [None]
  - URINARY RETENTION [None]
  - ELECTROCARDIOGRAM T WAVE ABNORMAL [None]
  - STATUS EPILEPTICUS [None]
  - QRS AXIS ABNORMAL [None]
  - ASPARTATE AMINOTRANSFERASE INCREASED [None]
  - ASTHENIA [None]
  - MOANING [None]
  - ABNORMAL BEHAVIOUR [None]
  - VISION BLURRED [None]
  - SEDATION [None]
  - INCOHERENT [None]
  - AGGRESSION [None]
  - CONDUCTION DISORDER [None]
